FAERS Safety Report 16591317 (Version 1)
Quarter: 2019Q3

REPORT INFORMATION
  Report Type: Spontaneous
  Country: US (occurrence: US)
  Receive Date: 20190718
  Receipt Date: 20190718
  Transmission Date: 20191004
  Serious: Yes (Hospitalization, Other)
  Sender: FDA-Public Use
  Company Number: US-NAPPMUNDI-USA-2019-0147746

PATIENT
  Sex: Male

DRUGS (5)
  1. DILAUDID [Suspect]
     Active Substance: HYDROMORPHONE HYDROCHLORIDE
     Indication: PAIN
     Dosage: 8 MG, 5/DAY
     Route: 048
  2. LYRICA [Suspect]
     Active Substance: PREGABALIN
     Indication: BACK PAIN
     Dosage: UNK
     Route: 048
  3. BUPRENORPHINE (SIMILAR TO NDA 21-306) [Suspect]
     Active Substance: BUPRENORPHINE
     Indication: PAIN
     Dosage: UNK
     Route: 065
  4. OXYCODONE HYDROCHLORIDE (SIMILAR TO NDA 22-272) [Suspect]
     Active Substance: OXYCODONE HYDROCHLORIDE
     Indication: PAIN
     Dosage: UNK
     Route: 048
  5. OXYCONTIN [Suspect]
     Active Substance: OXYCODONE HYDROCHLORIDE
     Indication: PAIN
     Dosage: 80 MG, BID
     Route: 048

REACTIONS (6)
  - Hospitalisation [Unknown]
  - Hip arthroplasty [Recovered/Resolved]
  - Limb injury [Unknown]
  - Suicidal ideation [Unknown]
  - Back pain [Not Recovered/Not Resolved]
  - Pain in extremity [Unknown]
